FAERS Safety Report 7475138-5 (Version None)
Quarter: 2011Q2

REPORT INFORMATION
  Report Type: 
  Country: None (occurrence: None)
  Receive Date: 20110512
  Receipt Date: 20110427
  Transmission Date: 20111010
  Serious: Yes (Hospitalization, Other)
  Sender: FDA-Public Use
  Company Number: US-ELI_LILLY_AND_COMPANY-US201006001076

PATIENT
  Sex: Female
  Weight: 55 kg

DRUGS (13)
  1. FORTEO [Suspect]
     Indication: OSTEOPOROSIS
     Dosage: 20 UG, DAILY (1/D)
     Route: 058
  2. LISINOPRIL [Concomitant]
  3. FORTEO [Suspect]
     Dosage: 20 UG, QD
     Route: 058
  4. SYNTHROID [Concomitant]
     Dosage: 0.112 MG, DAILY (1/D)
  5. CILOSTAZOL [Concomitant]
     Dosage: 100 MG, 2/D
  6. VITAMIN D [Concomitant]
     Dosage: UNK, DAILY (1/D)
  7. AMLODIPINE BESYLATE [Concomitant]
  8. ZILACTIN [Concomitant]
     Dosage: 0.5 MG, DAILY (1/D)
  9. CALTRATE 600 + D [Concomitant]
     Dosage: UNK, 2/D
  10. FORTEO [Suspect]
     Dosage: 20 UG, DAILY (1/D)
     Route: 058
  11. HYDROCHLOROTHIAZIDE [Concomitant]
     Dosage: 12.5 MG, DAILY (1/D)
  12. ASPIRIN [Concomitant]
  13. PANTOPRAZOLE [Concomitant]
     Dosage: 40 MG, 2/D

REACTIONS (10)
  - VENOUS OCCLUSION [None]
  - PULSE ABSENT [None]
  - PRURITUS [None]
  - STRESS [None]
  - CARDIAC FAILURE CONGESTIVE [None]
  - FAMILY STRESS [None]
  - COUGH [None]
  - ATRIAL FIBRILLATION [None]
  - MYOCARDIAL INFARCTION [None]
  - CARDIAC MURMUR [None]
